FAERS Safety Report 18044997 (Version 5)
Quarter: 2020Q3

REPORT INFORMATION
  Report Type: Spontaneous
  Country: FR (occurrence: FR)
  Receive Date: 20200720
  Receipt Date: 20200915
  Transmission Date: 20201103
  Serious: Yes (Death)
  Sender: FDA-Public Use
  Company Number: FR-MYLANLABS-2020M1064162

PATIENT
  Age: 73 Year
  Sex: Male
  Weight: 98 kg

DRUGS (7)
  1. OCTAGAM IMMUNE GLOBULIN (HUMAN) [Suspect]
     Active Substance: HUMAN IMMUNOGLOBULIN G
     Indication: GUILLAIN-BARRE SYNDROME
     Dosage: UNK
     Route: 041
     Dates: start: 20200619, end: 20200623
  2. GENTAMICINE                        /00047101/ [Suspect]
     Active Substance: GENTAMICIN
     Indication: SEPSIS
     Dosage: UNK
     Route: 041
     Dates: start: 20200623, end: 20200625
  3. VANCOMYCIN [Suspect]
     Active Substance: VANCOMYCIN
     Indication: SEPSIS
     Dosage: UNK
     Route: 041
     Dates: start: 20200622, end: 20200625
  4. IMIPENEM [Suspect]
     Active Substance: IMIPENEM
     Indication: SEPSIS
     Dosage: UNK
     Route: 041
     Dates: start: 20200622, end: 20200624
  5. AMIKACIN. [Suspect]
     Active Substance: AMIKACIN
     Indication: SEPSIS
     Dosage: UNK
     Route: 041
     Dates: start: 20200622, end: 20200622
  6. TIENAM [Suspect]
     Active Substance: CILASTATIN SODIUM\IMIPENEM
     Indication: SEPSIS
     Dosage: UNK
     Route: 041
     Dates: start: 20200622, end: 20200624
  7. VIALEBEX [Suspect]
     Active Substance: ALBUMIN HUMAN
     Indication: GUILLAIN-BARRE SYNDROME
     Dosage: UNK
     Route: 041
     Dates: start: 20200619, end: 20200623

REACTIONS (3)
  - Product use in unapproved indication [Fatal]
  - Sepsis [Fatal]
  - Acute kidney injury [Fatal]

NARRATIVE: CASE EVENT DATE: 20200622
